FAERS Safety Report 8976280 (Version 2)
Quarter: 2013Q2

REPORT INFORMATION
  Report Type: Spontaneous
  Country: NZ (occurrence: NZ)
  Receive Date: 20121220
  Receipt Date: 20130514
  Transmission Date: 20140414
  Serious: Yes (Hospitalization)
  Sender: FDA-Public Use
  Company Number: NZ-PURDUE-USA-2012-0097044

PATIENT
  Age: 53 Year
  Sex: Female

DRUGS (4)
  1. OXYCONTIN TABLETS [Suspect]
     Indication: BACK PAIN
     Dosage: 60 MG, DAILY
     Route: 048
     Dates: start: 2012
  2. OXYNORM [Suspect]
     Indication: BREAKTHROUGH PAIN
     Dosage: 20 MG, UNK
     Route: 048
  3. NALTREXONE [Concomitant]
     Indication: PRODUCT USED FOR UNKNOWN INDICATION
  4. VOLTAREN                           /00372301/ [Concomitant]
     Indication: PRODUCT USED FOR UNKNOWN INDICATION

REACTIONS (4)
  - Delirium [Not Recovered/Not Resolved]
  - Sedation [Unknown]
  - Hypotension [Unknown]
  - Agitation [Unknown]
